FAERS Safety Report 17044501 (Version 1)
Quarter: 2019Q4

REPORT INFORMATION
  Report Type: Spontaneous
  Country: US (occurrence: US)
  Receive Date: 20191117
  Receipt Date: 20191117
  Transmission Date: 20200122
  Serious: No
  Sender: FDA-Public Use
  Company Number: None

PATIENT
  Age: 50 Year
  Sex: Female
  Weight: 67.5 kg

DRUGS (1)
  1. AIMOVIG [Suspect]
     Active Substance: ERENUMAB-AOOE
     Indication: MIGRAINE PROPHYLAXIS
     Dosage: ?          OTHER FREQUENCY:MONTHLY INJECTION;?
     Route: 030
     Dates: start: 20191022

REACTIONS (12)
  - Sleep disorder [None]
  - Pyrexia [None]
  - Constipation [None]
  - Dyspnoea [None]
  - Flushing [None]
  - Fatigue [None]
  - Paradoxical drug reaction [None]
  - Arthralgia [None]
  - Peripheral swelling [None]
  - Migraine [None]
  - Visual impairment [None]
  - Palpitations [None]

NARRATIVE: CASE EVENT DATE: 20191022
